FAERS Safety Report 19060973 (Version 1)
Quarter: 2021Q1

REPORT INFORMATION
  Report Type: Report from Study
  Country: US (occurrence: US)
  Receive Date: 20210326
  Receipt Date: 20210326
  Transmission Date: 20210420
  Serious: No
  Sender: FDA-Public Use
  Company Number: US-ACADIA PHARMACEUTICALS INC.-ACA-2021-PIM-000901

PATIENT
  Sex: Male

DRUGS (8)
  1. CITALOPRAM [Concomitant]
     Active Substance: CITALOPRAM HYDROBROMIDE
  2. NUPLAZID [Suspect]
     Active Substance: PIMAVANSERIN TARTRATE
     Indication: PARKINSON^S DISEASE
     Dosage: 34 MILLIGRAM, QD
     Route: 048
     Dates: start: 20201117
  3. DONEPEZIL. [Concomitant]
     Active Substance: DONEPEZIL
  4. QUETIAPINE. [Concomitant]
     Active Substance: QUETIAPINE
  5. CARBIDOPA/LEVODOPA [Concomitant]
     Active Substance: CARBIDOPA\LEVODOPA
  6. DESMOPRESSIN [Concomitant]
     Active Substance: DESMOPRESSIN
  7. PRAVASTATIN. [Concomitant]
     Active Substance: PRAVASTATIN
  8. MYRBETRIQ [Concomitant]
     Active Substance: MIRABEGRON

REACTIONS (3)
  - Drug ineffective [Not Recovered/Not Resolved]
  - Lethargy [Not Recovered/Not Resolved]
  - Confusional state [Not Recovered/Not Resolved]
